FAERS Safety Report 7824412-9 (Version None)
Quarter: 2011Q4

REPORT INFORMATION
  Report Type: 
  Country: None (occurrence: None)
  Receive Date: 20111019
  Receipt Date: 20111010
  Transmission Date: 20120403
  Serious: Yes (Death, Hospitalization, Other)
  Sender: FDA-Public Use
  Company Number: US-JNJFOC-20111006384

PATIENT
  Age: 69 Year
  Sex: Male

DRUGS (19)
  1. DEXAMETHASONE [Suspect]
     Indication: HAIRY CELL LEUKAEMIA
     Route: 065
     Dates: start: 20090901
  2. CISPLATIN [Suspect]
     Indication: LARGE GRANULAR LYMPHOCYTOSIS
     Route: 065
     Dates: start: 20090901
  3. VELCADE [Suspect]
     Indication: HAIRY CELL LEUKAEMIA
     Route: 065
     Dates: start: 20090901
  4. THALIDOMIDE [Suspect]
     Indication: MULTIPLE MYELOMA
     Route: 065
     Dates: start: 20090901
  5. CISPLATIN [Suspect]
     Indication: MULTIPLE MYELOMA
     Route: 065
     Dates: start: 20090901
  6. CYCLOPHOSPHAMIDE [Suspect]
     Indication: MULTIPLE MYELOMA
     Route: 065
     Dates: start: 20090901
  7. ETOPOSIDE [Suspect]
     Indication: LARGE GRANULAR LYMPHOCYTOSIS
     Route: 065
     Dates: start: 20090901
  8. VELCADE [Suspect]
     Indication: LARGE GRANULAR LYMPHOCYTOSIS
     Route: 065
     Dates: start: 20090901
  9. DEXAMETHASONE [Suspect]
     Indication: MULTIPLE MYELOMA
     Route: 065
     Dates: start: 20090901
  10. DEXAMETHASONE [Suspect]
     Indication: LARGE GRANULAR LYMPHOCYTOSIS
     Route: 065
     Dates: start: 20090901
  11. CISPLATIN [Suspect]
     Indication: HAIRY CELL LEUKAEMIA
     Route: 065
     Dates: start: 20090901
  12. ETOPOSIDE [Suspect]
     Indication: HAIRY CELL LEUKAEMIA
     Route: 065
     Dates: start: 20090901
  13. VELCADE [Suspect]
     Indication: MULTIPLE MYELOMA
     Route: 065
     Dates: start: 20090901
  14. ETOPOSIDE [Suspect]
     Indication: MULTIPLE MYELOMA
     Route: 065
     Dates: start: 20090901
  15. DOXORUBICIN HCL [Suspect]
     Indication: MULTIPLE MYELOMA
     Route: 042
     Dates: start: 20090901
  16. THALIDOMIDE [Suspect]
     Indication: LARGE GRANULAR LYMPHOCYTOSIS
     Route: 065
     Dates: start: 20090901
  17. CYCLOPHOSPHAMIDE [Suspect]
     Indication: LARGE GRANULAR LYMPHOCYTOSIS
     Route: 065
     Dates: start: 20090901
  18. THALIDOMIDE [Suspect]
     Indication: HAIRY CELL LEUKAEMIA
     Route: 065
     Dates: start: 20090901
  19. CYCLOPHOSPHAMIDE [Suspect]
     Indication: HAIRY CELL LEUKAEMIA
     Route: 065
     Dates: start: 20090901

REACTIONS (3)
  - DISEASE PROGRESSION [None]
  - RENAL IMPAIRMENT [None]
  - BLOOD LACTATE DEHYDROGENASE INCREASED [None]
